FAERS Safety Report 4984665-1 (Version None)
Quarter: 2006Q2

REPORT INFORMATION
  Report Type: 
  Country: None (occurrence: None)
  Receive Date: 20060427
  Receipt Date: 20051110
  Transmission Date: 20061013
  Serious: Yes (Hospitalization, Disabling)
  Sender: FDA-Public Use
  Company Number: US-MERCK-0511USA02062

PATIENT
  Age: 65 Year
  Sex: Female
  Weight: 100 kg

DRUGS (11)
  1. VIOXX [Suspect]
     Indication: OSTEOARTHRITIS
     Route: 048
     Dates: start: 20030101, end: 20040501
  2. VIOXX [Suspect]
     Route: 048
     Dates: start: 20030101, end: 20040501
  3. ASPIRIN [Concomitant]
     Route: 048
  4. EVISTA [Concomitant]
     Indication: OSTEOPOROSIS
     Route: 048
  5. PLAVIX [Concomitant]
     Indication: THROMBOSIS PROPHYLAXIS
     Route: 048
  6. KEFLEX [Concomitant]
     Indication: INFECTION
     Route: 048
  7. TENORMIN [Concomitant]
     Indication: BLOOD PRESSURE
     Route: 048
  8. TENORMIN [Concomitant]
     Indication: ANGINA PECTORIS
     Route: 048
  9. NITROGLYCERIN [Concomitant]
     Indication: CHEST PAIN
     Route: 065
  10. [THERAPY UNSPECIFIED] [Concomitant]
     Route: 048
  11. ASPIRIN [Concomitant]
     Indication: THROMBOSIS PROPHYLAXIS
     Route: 048
     Dates: start: 20040616

REACTIONS (5)
  - ANGINA PECTORIS [None]
  - BLOOD PRESSURE [None]
  - INFECTION [None]
  - MYOCARDIAL INFARCTION [None]
  - OSTEOPOROSIS [None]
